FAERS Safety Report 8306902-8 (Version None)
Quarter: 2012Q2

REPORT INFORMATION
  Report Type: 
  Country: None (occurrence: None)
  Receive Date: 20120424
  Receipt Date: 20120412
  Transmission Date: 20120825
  Serious: Yes (Other)
  Sender: FDA-Public Use
  Company Number: SE-JNJFOC-20120407081

PATIENT
  Age: 32 Year
  Sex: Male

DRUGS (3)
  1. OLSALAZINE [Concomitant]
     Route: 065
  2. REMICADE [Suspect]
     Indication: COLITIS ULCERATIVE
     Route: 042
     Dates: start: 20110711, end: 20111212
  3. PREDNISOLONE [Concomitant]
     Route: 065

REACTIONS (2)
  - LUNG INFILTRATION [None]
  - RASH ERYTHEMATOUS [None]
